FAERS Safety Report 4342882-8 (Version None)
Quarter: 2004Q2

REPORT INFORMATION
  Report Type: 
  Country: None (occurrence: None)
  Receive Date: 20040416
  Receipt Date: 20040405
  Transmission Date: 20050107
  Serious: Yes (Hospitalization, Other)
  Sender: FDA-Public Use
  Company Number: DEWYE684905APR04

PATIENT
  Age: 47 Year
  Sex: Male

DRUGS (9)
  1. RAPAMUNE [Suspect]
     Indication: PROPHYLAXIS AGAINST TRANSPLANT REJECTION
     Dosage: SEE IMAGE
     Dates: start: 20030619, end: 20030619
  2. RAPAMUNE [Suspect]
     Indication: PROPHYLAXIS AGAINST TRANSPLANT REJECTION
     Dosage: SEE IMAGE
     Dates: start: 20030620
  3. CYCLOSPORINE [Concomitant]
  4. CELLCEPT [Concomitant]
  5. URBASON (METHYLPREDNISOLONE) [Concomitant]
  6. TENORMIN [Concomitant]
  7. MUNOBAL (FELODIPINE) [Concomitant]
  8. LASIX [Concomitant]
  9. SORTIS (ATORVASTATIN CALCIUM) [Concomitant]

REACTIONS (1)
  - NEPHRECTOMY [None]
